FAERS Safety Report 5168771-7 (Version None)
Quarter: 2006Q4

REPORT INFORMATION
  Report Type: 
  Country: None (occurrence: None)
  Receive Date: 20061211
  Receipt Date: 20061202
  Transmission Date: 20070319
  Serious: Yes (Other)
  Sender: FDA-Public Use
  Company Number: BR-JNJFOC-20061201510

PATIENT
  Age: 1 Year
  Weight: 11 kg

DRUGS (1)
  1. HALDOL [Suspect]
     Indication: MEDICATION ERROR
     Route: 042

REACTIONS (2)
  - SOMNOLENCE [None]
  - WRONG DRUG ADMINISTERED [None]
